FAERS Safety Report 5622501-0 (Version None)
Quarter: 2008Q1

REPORT INFORMATION
  Report Type: 
  Country: None (occurrence: None)
  Receive Date: 20080211
  Receipt Date: 20080201
  Transmission Date: 20080703
  Serious: Yes (Hospitalization, Disabling)
  Sender: FDA-Public Use
  Company Number: US-MERCK-0703USA04386

PATIENT
  Age: 86 Year
  Sex: Female
  Weight: 46 kg

DRUGS (3)
  1. FOSAMAX [Suspect]
     Indication: OSTEOPOROSIS
     Route: 048
     Dates: start: 19980101, end: 20060101
  2. FOSAMAX [Suspect]
     Route: 048
  3. FOSAMAX [Suspect]
     Route: 048

REACTIONS (12)
  - APHTHOUS STOMATITIS [None]
  - CARDIAC FAILURE CONGESTIVE [None]
  - CATARACT [None]
  - CHRONIC OBSTRUCTIVE PULMONARY DISEASE [None]
  - GINGIVAL PAIN [None]
  - LYMPHOEDEMA [None]
  - NEURODERMATITIS [None]
  - OSTEOMYELITIS [None]
  - OSTEONECROSIS [None]
  - SCOLIOSIS [None]
  - SENSITIVITY OF TEETH [None]
  - TOOTHACHE [None]
